FAERS Safety Report 8962825 (Version 2)
Quarter: 2012Q4

REPORT INFORMATION
  Report Type: 
  Country: JP (occurrence: JP)
  Receive Date: 20121214
  Receipt Date: 20121227
  Transmission Date: 20130627
  Serious: Yes (Hospitalization, Other)
  Sender: FDA-Public Use
  Company Number: JP-ASTELLAS-2012JP011568

PATIENT
  Sex: Male

DRUGS (8)
  1. PROGRAF [Suspect]
     Indication: RHEUMATOID ARTHRITIS
     Dosage: 1 mg, UID/QD
     Route: 048
     Dates: start: 2012
  2. CEFOCEF [Suspect]
     Indication: BACTERIAL INFECTION
     Dosage: 2 g, Unknown/D
     Route: 042
     Dates: start: 20121123, end: 20121130
  3. CEFOCEF [Suspect]
     Dosage: 1 g, Unknown/D
     Route: 042
     Dates: start: 20121201, end: 20121203
  4. SUNRYTHM [Concomitant]
     Dosage: UNK
     Route: 048
  5. PROMAC                             /01312301/ [Concomitant]
     Dosage: UNK
     Route: 048
  6. RHEUMATREX                         /00113801/ [Concomitant]
     Dosage: UNK
     Route: 048
  7. OMEPRAL /00661201/ [Concomitant]
     Route: 048
  8. TAKEPRON [Concomitant]
     Route: 048

REACTIONS (4)
  - Intentional drug misuse [Unknown]
  - Liver disorder [Not Recovered/Not Resolved]
  - Aspartate aminotransferase increased [None]
  - Alanine aminotransferase increased [None]
